FAERS Safety Report 9557495 (Version 1)
Quarter: 2013Q3

REPORT INFORMATION
  Report Type: Spontaneous
  Country: US (occurrence: None)
  Receive Date: 20130726
  Receipt Date: 20130726
  Transmission Date: 20140515
  Serious: Yes (Hospitalization)
  Sender: FDA-Public Use
  Company Number: UTC-029962

PATIENT
  Age: 64 Year
  Sex: Male
  Weight: 91.4 kg

DRUGS (2)
  1. REMODULIN [Suspect]
     Indication: PULMONARY ARTERIAL HYPERTENSION
     Dosage: 60.48 UG/KG (0.042 UG/KG, 1 IN 1 MIN)
     Route: 041
     Dates: start: 20120823
  2. ASPIRIN [Concomitant]

REACTIONS (1)
  - Pulmonary hypertension [None]
